FAERS Safety Report 7595993-8 (Version None)
Quarter: 2011Q3

REPORT INFORMATION
  Report Type: 
  Country: None (occurrence: None)
  Receive Date: 20110707
  Receipt Date: 20110627
  Transmission Date: 20111222
  Serious: Yes (Hospitalization, Other)
  Sender: FDA-Public Use
  Company Number: PHHY2010DE04866

PATIENT
  Sex: Female
  Weight: 60 kg

DRUGS (5)
  1. CALCIUM CARBONATE [Concomitant]
     Indication: OSTEOPOROSIS
     Dosage: 300 MG, TID
     Dates: start: 20091211
  2. DEKRISTOL [Concomitant]
     Dosage: WEEKLY
  3. ZOLEDRONOC ACID [Suspect]
     Indication: OSTEOPOROSIS
     Dosage: 5 MG ONCE YEARLY
     Route: 042
     Dates: start: 20100112
  4. VITAMIN D [Concomitant]
     Indication: OSTEOPOROSIS
     Dosage: 2850 UNK, UNK
     Dates: start: 20091211
  5. NSAID [Concomitant]
     Dosage: 400 MG, UNK

REACTIONS (4)
  - LOSS OF CONSCIOUSNESS [None]
  - FALL [None]
  - DIZZINESS [None]
  - LACERATION [None]
